FAERS Safety Report 5586293-6 (Version None)
Quarter: 2008Q1

REPORT INFORMATION
  Report Type: 
  Country: None (occurrence: None)
  Receive Date: 20080110
  Receipt Date: 20071228
  Transmission Date: 20080703
  Serious: Yes (Disabling)
  Sender: FDA-Public Use
  Company Number: DK-BAYER-DK-2007-008990

PATIENT
  Age: 39 Year
  Sex: Female

DRUGS (1)
  1. LEVONORGESTREL [Suspect]
     Indication: MENSTRUAL DISORDER
     Route: 015
     Dates: start: 20061221, end: 20070301

REACTIONS (1)
  - DERMATITIS ATOPIC [None]
